FAERS Safety Report 4851585-2 (Version None)
Quarter: 2005Q4

REPORT INFORMATION
  Report Type: 
  Country: None (occurrence: None)
  Receive Date: 20051212
  Receipt Date: 20051201
  Transmission Date: 20060501
  Serious: Yes (Life-Threatening)
  Sender: FDA-Public Use
  Company Number: IT-ROCHE-427060

PATIENT
  Age: 42 Year
  Sex: Male

DRUGS (3)
  1. ROCEPHIN [Suspect]
     Indication: PLEURAL EFFUSION
     Route: 042
     Dates: start: 20050805, end: 20050805
  2. KETOROLAC TROMETHAMINE [Concomitant]
     Route: 030
  3. PANTOPAN [Concomitant]
     Route: 048

REACTIONS (4)
  - ERYTHEMA [None]
  - MALAISE [None]
  - PRURITUS GENERALISED [None]
  - RESPIRATORY FAILURE [None]
